FAERS Safety Report 8765774 (Version 3)
Quarter: 2012Q4

REPORT INFORMATION
  Report Type: 
  Country: US (occurrence: US)
  Receive Date: 20120904
  Receipt Date: 20121008
  Transmission Date: 20130627
  Serious: No
  Sender: FDA-Public Use
  Company Number: US-PFIZER INC-2012215797

PATIENT
  Sex: Female

DRUGS (1)
  1. CHANTIX [Suspect]
     Dosage: 2 pills

REACTIONS (3)
  - Insomnia [Unknown]
  - Pruritus [Not Recovered/Not Resolved]
  - Restlessness [Unknown]
